FAERS Safety Report 16920684 (Version 1)
Quarter: 2019Q4

REPORT INFORMATION
  Report Type: Spontaneous
  Country: US (occurrence: US)
  Receive Date: 20191015
  Receipt Date: 20191015
  Transmission Date: 20200122
  Serious: No
  Sender: FDA-Public Use
  Company Number: US-009507513-1910USA006862

PATIENT
  Sex: Female

DRUGS (1)
  1. NUVARING [Suspect]
     Active Substance: ETHINYL ESTRADIOL\ETONOGESTREL
     Dosage: 1 DOSAGE FORM, QM CONTINUOUSLY

REACTIONS (4)
  - Incorrect product administration duration [Unknown]
  - Product quality issue [Unknown]
  - Product prescribing error [Unknown]
  - Device expulsion [Unknown]

NARRATIVE: CASE EVENT DATE: 20191006
